FAERS Safety Report 25588968 (Version 1)
Quarter: 2025Q3

REPORT INFORMATION
  Report Type: Spontaneous
  Country: JP (occurrence: JP)
  Receive Date: 20250722
  Receipt Date: 20250722
  Transmission Date: 20251020
  Serious: Yes (Other)
  Sender: CHEPLAPHARM
  Company Number: JP-CP_KK-2025JP004226

PATIENT
  Age: 74 Year
  Sex: Female

DRUGS (1)
  1. HYDROXYUREA [Suspect]
     Active Substance: HYDROXYUREA
     Indication: Essential thrombocythaemia

REACTIONS (4)
  - Progressive multifocal leukoencephalopathy [Unknown]
  - CD4 lymphocytes decreased [Unknown]
  - Dyslalia [Unknown]
  - Gait disturbance [Unknown]
